FAERS Safety Report 5265209-6 (Version None)
Quarter: 2007Q1

REPORT INFORMATION
  Report Type: 
  Country: None (occurrence: None)
  Receive Date: 20061213
  Receipt Date: 20040524
  Transmission Date: 20070707
  Serious: No
  Sender: FDA-Public Use
  Company Number: 2004UW08555

PATIENT
  Age: 41 Year
  Sex: Female

DRUGS (3)
  1. NOLVADEX [Suspect]
     Indication: BREAST CANCER
     Dosage: 20 MG QD PO
     Route: 048
     Dates: start: 20010401, end: 20030101
  2. TAMOXIFEN CITRATE [Suspect]
     Indication: BREAST CANCER
     Dosage: 20 MG QD PO
     Route: 048
  3. TAMOXIFEN CITRATE [Suspect]
     Indication: BREAST CANCER
     Dosage: 20 MG QD PO
     Route: 048
     Dates: start: 20030101

REACTIONS (3)
  - BLADDER DISCOMFORT [None]
  - ENDOMETRIAL HYPERTROPHY [None]
  - VAGINAL DISCHARGE [None]
